FAERS Safety Report 6903507-8 (Version None)
Quarter: 2010Q3

REPORT INFORMATION
  Report Type: 
  Country: None (occurrence: None)
  Receive Date: 20100803
  Receipt Date: 20081014
  Transmission Date: 20110219
  Serious: No
  Sender: FDA-Public Use
  Company Number: US-PFIZER INC-2008086759

PATIENT
  Sex: Male
  Weight: 113.6 kg

DRUGS (2)
  1. LYRICA [Suspect]
     Dates: start: 20081001, end: 20081014
  2. VICODIN [Concomitant]

REACTIONS (1)
  - VISION BLURRED [None]
